FAERS Safety Report 21351864 (Version 1)
Quarter: 2022Q3

REPORT INFORMATION
  Report Type: Spontaneous
  Country: US (occurrence: None)
  Receive Date: 20220917
  Receipt Date: 20220917
  Transmission Date: 20221027
  Serious: No
  Sender: FDA-Public Use
  Company Number: None

PATIENT
  Age: 34 Year
  Sex: Male
  Weight: 87 kg

DRUGS (1)
  1. FENTANYL [Suspect]
     Active Substance: FENTANYL
     Indication: Pain
     Route: 061
     Dates: start: 20220821, end: 20220821

REACTIONS (4)
  - Accidental exposure to product [None]
  - Muscular weakness [None]
  - Dizziness [None]
  - Lethargy [None]

NARRATIVE: CASE EVENT DATE: 20220821
